FAERS Safety Report 6176491-5 (Version None)
Quarter: 2009Q2

REPORT INFORMATION
  Report Type: 
  Country: None (occurrence: None)
  Receive Date: 20090501
  Receipt Date: 20090424
  Transmission Date: 20091009
  Serious: Yes (Other)
  Sender: FDA-Public Use
  Company Number: PHHY2009JP15852

PATIENT
  Sex: Female

DRUGS (2)
  1. DIOVAN [Suspect]
     Dosage: 40 MG, QD
     Route: 048
  2. LIPIDIL [Concomitant]

REACTIONS (1)
  - PHARYNGEAL HAEMORRHAGE [None]
